FAERS Safety Report 10214596 (Version 2)
Quarter: 2014Q2

REPORT INFORMATION
  Report Type: Spontaneous
  Country: JP (occurrence: JP)
  Receive Date: 20140603
  Receipt Date: 20140624
  Transmission Date: 20141212
  Serious: Yes (Hospitalization)
  Sender: FDA-Public Use
  Company Number: JP-GLAXOSMITHKLINE-B0998503A

PATIENT
  Age: 80 Year
  Sex: Female

DRUGS (3)
  1. REQUIP [Suspect]
     Indication: PARKINSON^S DISEASE
     Dosage: 4MG PER DAY
     Route: 048
     Dates: start: 20140422, end: 20140614
  2. MADOPAR [Concomitant]
     Indication: PARKINSON^S DISEASE
     Dosage: 100MG THREE TIMES PER DAY
     Route: 048
     Dates: start: 20140422, end: 20140614
  3. AMANTADINE HYDROCHLORIDE [Concomitant]
     Indication: PARKINSON^S DISEASE
     Dosage: 50MG THREE TIMES PER DAY
     Route: 048
     Dates: start: 20140422, end: 20140614

REACTIONS (4)
  - Renal impairment [Unknown]
  - Dementia [Unknown]
  - Hallucination [Not Recovered/Not Resolved]
  - Delusion [Recovered/Resolved]
